FAERS Safety Report 4977941-X (Version None)
Quarter: 2006Q2

REPORT INFORMATION
  Report Type: 
  Country: None (occurrence: None)
  Receive Date: 20060417
  Receipt Date: 20060405
  Transmission Date: 20061013
  Serious: Yes (Hospitalization, Other)
  Sender: FDA-Public Use
  Company Number: 2006031649

PATIENT
  Sex: Female

DRUGS (3)
  1. NEURONTIN [Suspect]
     Indication: BIPOLAR I DISORDER
     Dosage: ORAL
     Route: 048
  2. ALCOHOL (ETHANOL) [Suspect]
     Indication: ILL-DEFINED DISORDER
     Dosage: ORAL
     Route: 048
  3. CELEXA [Concomitant]

REACTIONS (7)
  - ALCOHOL POISONING [None]
  - ANXIETY [None]
  - INTENTIONAL DRUG MISUSE [None]
  - NAUSEA [None]
  - OFF LABEL USE [None]
  - SUICIDAL IDEATION [None]
  - SUICIDE ATTEMPT [None]
